FAERS Safety Report 5755126-7 (Version None)
Quarter: 2008Q2

REPORT INFORMATION
  Report Type: 
  Country: None (occurrence: None)
  Receive Date: 20080602
  Receipt Date: 20080522
  Transmission Date: 20081010
  Serious: Yes (Other)
  Sender: FDA-Public Use
  Company Number: BE-JNJFOC-20080406781

PATIENT
  Age: 47 Year
  Sex: Female
  Weight: 56.8 kg

DRUGS (3)
  1. CAELYX [Suspect]
     Indication: OVARIAN CANCER
     Dosage: 2 CYCLES
     Route: 042
  2. CARBOPLATIN [Suspect]
     Indication: OVARIAN CANCER
     Route: 065
  3. ZOFRAN [Concomitant]
     Route: 065

REACTIONS (1)
  - ERYTHEMA [None]
